FAERS Safety Report 9518849 (Version 1)
Quarter: 2013Q3

REPORT INFORMATION
  Report Type: Spontaneous
  Country: US (occurrence: None)
  Receive Date: 20130910
  Receipt Date: 20130910
  Transmission Date: 20140515
  Serious: Yes (Other)
  Sender: FDA-Public Use
  Company Number: SYM-2013-10384

PATIENT
  Age: 76 Year
  Sex: Male

DRUGS (1)
  1. TASMAR [Suspect]
     Indication: PARKINSON^S DISEASE
     Route: 048

REACTIONS (5)
  - Scar [None]
  - Post procedural complication [None]
  - Blood urine present [None]
  - Chromaturia [None]
  - Micturition disorder [None]
